FAERS Safety Report 6861495-7 (Version None)
Quarter: 2010Q3

REPORT INFORMATION
  Report Type: 
  Country: None (occurrence: None)
  Receive Date: 20100720
  Receipt Date: 20100720
  Transmission Date: 20110219
  Serious: Yes (Life-Threatening, Hospitalization)
  Sender: FDA-Public Use
  Company Number: None

PATIENT
  Age: 36 Year
  Sex: Male

DRUGS (4)
  1. DIVALPROEX SODIUM [Suspect]
     Indication: BIPOLAR I DISORDER
     Dosage: 1000 MG NOON, 2000 MG BEDTIME PO
     Route: 048
     Dates: start: 20080914, end: 20100426
  2. ZYPREXA [Suspect]
     Indication: BIPOLAR I DISORDER
     Dosage: 5 MG TWICE DAILY PO
     Route: 048
     Dates: start: 20100322, end: 20100705
  3. LACTULOSE [Concomitant]
  4. LAMOTRIGINE [Concomitant]

REACTIONS (11)
  - ALANINE AMINOTRANSFERASE INCREASED [None]
  - ANTICONVULSANT DRUG LEVEL INCREASED [None]
  - ASPARTATE AMINOTRANSFERASE INCREASED [None]
  - BLOOD BILIRUBIN INCREASED [None]
  - BLOOD GLUCOSE INCREASED [None]
  - BLOOD UREA DECREASED [None]
  - HEPATITIS [None]
  - HEPATOTOXICITY [None]
  - MANIA [None]
  - MENTAL STATUS CHANGES [None]
  - WHITE BLOOD CELL COUNT DECREASED [None]
